FAERS Safety Report 10277585 (Version 1)
Quarter: 2014Q3

REPORT INFORMATION
  Report Type: Spontaneous
  Country: US (occurrence: US)
  Receive Date: 20140704
  Receipt Date: 20140704
  Transmission Date: 20150326
  Serious: Yes (Life-Threatening, Hospitalization)
  Sender: FDA-Public Use
  Company Number: US-BRISTOL-MYERS SQUIBB COMPANY-21105416

PATIENT
  Age: 44 Year
  Sex: Male
  Weight: 130.15 kg

DRUGS (1)
  1. ABILIFY [Suspect]
     Active Substance: ARIPIPRAZOLE
     Dosage: 5MG,10MG,9MG FOR 2MONTHS

REACTIONS (2)
  - Pneumonia [Unknown]
  - Heat stroke [Unknown]
